FAERS Safety Report 4972430-0 (Version None)
Quarter: 2006Q2

REPORT INFORMATION
  Report Type: 
  Country: None (occurrence: None)
  Receive Date: 20060413
  Receipt Date: 20050321
  Transmission Date: 20061013
  Serious: Yes (Hospitalization, Other)
  Sender: FDA-Public Use
  Company Number: US-MERCK-0503USA03805

PATIENT
  Age: 74 Year
  Sex: Female
  Weight: 68 kg

DRUGS (2)
  1. VIOXX [Suspect]
     Indication: ARTHRALGIA
     Route: 048
     Dates: start: 20020101, end: 20040101
  2. VIOXX [Suspect]
     Route: 048
     Dates: start: 20020101, end: 20040101

REACTIONS (11)
  - ABDOMINAL PAIN LOWER [None]
  - ACUTE MYOCARDIAL INFARCTION [None]
  - CELLULITIS [None]
  - CEREBROVASCULAR ACCIDENT [None]
  - COUGH [None]
  - DIVERTICULITIS [None]
  - ENDOCARDITIS [None]
  - LUNG NEOPLASM [None]
  - PAIN IN EXTREMITY [None]
  - PERICARDIAL EFFUSION [None]
  - PYREXIA [None]
